FAERS Safety Report 7724132-5 (Version None)
Quarter: 2011Q3

REPORT INFORMATION
  Report Type: 
  Country: None (occurrence: None)
  Receive Date: 20110901
  Receipt Date: 20110818
  Transmission Date: 20111222
  Serious: Yes (Other)
  Sender: FDA-Public Use
  Company Number: DE-ROCHE-799722

PATIENT
  Sex: Male
  Weight: 85.6 kg

DRUGS (7)
  1. GRANISETRON [Concomitant]
     Indication: ANTIEMETIC SUPPORTIVE CARE
     Route: 042
     Dates: start: 20100809
  2. IRINOTECAN HCL [Concomitant]
     Route: 042
     Dates: start: 20100809
  3. AVASTIN [Suspect]
     Route: 042
     Dates: start: 20100809, end: 20101115
  4. AVASTIN [Suspect]
     Route: 042
     Dates: start: 20110404
  5. DEXAMETHASONE [Concomitant]
     Indication: ANTIEMETIC SUPPORTIVE CARE
     Route: 042
     Dates: start: 20100809
  6. EFUDEX [Concomitant]
     Route: 042
     Dates: start: 20100809
  7. LEUCOVORIN CALCIUM [Concomitant]
     Route: 042
     Dates: start: 20100809

REACTIONS (3)
  - JUGULAR VEIN THROMBOSIS [None]
  - METASTASES TO PERITONEUM [None]
  - IMPAIRED HEALING [None]
